FAERS Safety Report 6099265-2 (Version None)
Quarter: 2009Q1

REPORT INFORMATION
  Report Type: 
  Country: None (occurrence: None)
  Receive Date: 20090303
  Receipt Date: 20090227
  Transmission Date: 20090719
  Serious: Yes (Hospitalization)
  Sender: FDA-Public Use
  Company Number: IT-JNJFOC-20090206563

PATIENT
  Age: 80 Year
  Sex: Male

DRUGS (6)
  1. TAVANIC [Suspect]
     Indication: BRONCHITIS CHRONIC
     Route: 048
  2. SALAZOPYRIN EN [Concomitant]
     Route: 065
  3. MEDROL [Concomitant]
     Indication: RHEUMATOID ARTHRITIS
     Route: 065
  4. MOBIC [Concomitant]
     Route: 065
  5. LERCANIDIPINE [Concomitant]
     Route: 065
  6. XATRAL [Concomitant]
     Route: 065

REACTIONS (1)
  - TENDON INJURY [None]
